FAERS Safety Report 7220470-3 (Version None)
Quarter: 2011Q1

REPORT INFORMATION
  Report Type: 
  Country: None (occurrence: None)
  Receive Date: 20110111
  Receipt Date: 20110105
  Transmission Date: 20110831
  Serious: Yes (Death)
  Sender: FDA-Public Use
  Company Number: GB-BAXTER-2011BH000364

PATIENT
  Age: 25 Year
  Sex: Male

DRUGS (16)
  1. AMIKACIN [Concomitant]
     Indication: ANTIBIOTIC PROPHYLAXIS
     Route: 042
  2. HEPARIN [Concomitant]
     Indication: PRODUCT USED FOR UNKNOWN INDICATION
     Route: 065
  3. FLUCONAZOLE [Suspect]
     Indication: ORAL CANDIDIASIS
     Route: 065
  4. EFAVIRENZ [Concomitant]
     Indication: HIV INFECTION
     Route: 065
  5. PROTHIONAMIDE [Concomitant]
     Indication: TUBERCULOSIS
     Route: 042
  6. PYRAZINAMIDE [Concomitant]
     Indication: ANTIBIOTIC PROPHYLAXIS
     Route: 042
  7. VALGANCICLOVIR HCL [Concomitant]
     Indication: PRODUCT USED FOR UNKNOWN INDICATION
     Route: 065
  8. DARUNAVIR [Concomitant]
     Indication: HIV INFECTION
     Route: 065
  9. CLOFAZIMINE [Concomitant]
     Indication: PRODUCT USED FOR UNKNOWN INDICATION
     Route: 065
  10. LINEZOLID [Concomitant]
     Indication: TUBERCULOSIS
     Route: 065
  11. ONDANSETRON [Suspect]
     Indication: PRODUCT USED FOR UNKNOWN INDICATION
     Route: 065
  12. RITONAVIR [Suspect]
     Indication: HIV INFECTION
     Route: 065
  13. CYCLOSERINE [Concomitant]
     Indication: TUBERCULOSIS
     Route: 065
  14. MOXIFLOXACIN [Suspect]
     Indication: TUBERCULOSIS
     Route: 065
  15. ETHAMBUTOL HYDROCHLORIDE [Concomitant]
     Indication: ANTIBIOTIC PROPHYLAXIS
     Route: 042
  16. TENOFOVIR DISOPROXIL FUMARATE [Concomitant]
     Indication: HIV INFECTION
     Route: 065

REACTIONS (2)
  - SUDDEN DEATH [None]
  - ARRHYTHMIA [None]
